FAERS Safety Report 10170505 (Version 1)
Quarter: 2014Q2

REPORT INFORMATION
  Report Type: Spontaneous
  Country: AU (occurrence: AU)
  Receive Date: 20140513
  Receipt Date: 20140513
  Transmission Date: 20141212
  Serious: No
  Sender: FDA-Public Use
  Company Number: AU-LUNDBECK-DKLU1099321

PATIENT
  Age: 4 Year
  Sex: Female

DRUGS (1)
  1. SABRIL     (TABLET) [Suspect]
     Indication: PRODUCT USED FOR UNKNOWN INDICATION
     Route: 048

REACTIONS (1)
  - Drug dose omission [Unknown]
